FAERS Safety Report 10986806 (Version 1)
Quarter: 2015Q2

REPORT INFORMATION
  Report Type: Spontaneous
  Country: CA (occurrence: None)
  Receive Date: 20150402
  Receipt Date: 20150402
  Transmission Date: 20150821
  Serious: Yes (Other)
  Sender: FDA-Public Use
  Company Number: 2799694

PATIENT
  Sex: Female

DRUGS (6)
  1. VENTOLIN [Concomitant]
     Active Substance: ALBUTEROL SULFATE
  2. HYDRASENSE [Concomitant]
     Active Substance: SEA WATER
  3. NASONEX [Concomitant]
     Active Substance: MOMETASONE FUROATE
  4. XOLAIR [Suspect]
     Active Substance: OMALIZUMAB
     Indication: ASTHMA
     Dosage: 150 MG MILLIGRAM(S), 1 WEEK
     Route: 058
  5. ADVAIR HFA [Concomitant]
     Active Substance: FLUTICASONE PROPIONATE\SALMETEROL XINAFOATE
  6. METRONIDAZOLE. [Suspect]
     Active Substance: METRONIDAZOLE
     Indication: CLOSTRIDIUM DIFFICILE INFECTION
     Route: 048

REACTIONS (5)
  - Drug intolerance [None]
  - Abdominal pain upper [None]
  - Clostridium difficile infection [None]
  - Angina pectoris [None]
  - Dizziness [None]
